FAERS Safety Report 6122458-2 (Version None)
Quarter: 2009Q1

REPORT INFORMATION
  Report Type: 
  Country: None (occurrence: None)
  Receive Date: 20090318
  Receipt Date: 20081223
  Transmission Date: 20090719
  Serious: No
  Sender: FDA-Public Use
  Company Number: US-ASTRAZENECA-2008UW28695

PATIENT
  Age: 62 Year
  Sex: Female
  Weight: 55.8 kg

DRUGS (4)
  1. SYMBICORT [Suspect]
     Indication: COUGH
     Dosage: 160/4.5 MCG
     Route: 055
  2. ZITHROMAX [Concomitant]
  3. LEVOXYL [Concomitant]
  4. EVISTA [Concomitant]

REACTIONS (1)
  - DRUG EFFECT DECREASED [None]
